FAERS Safety Report 21952359 (Version 1)
Quarter: 2023Q1

REPORT INFORMATION
  Report Type: Spontaneous
  Country: US (occurrence: US)
  Receive Date: 20230203
  Receipt Date: 20230203
  Transmission Date: 20230417
  Serious: Yes (Hospitalization)
  Sender: FDA-Public Use
  Company Number: US-Blueprint Medicines Corporation-762

PATIENT
  Sex: Male

DRUGS (2)
  1. AYVAKIT [Suspect]
     Active Substance: AVAPRITINIB
     Indication: Systemic mastocytosis
     Route: 065
  2. AYVAKIT [Suspect]
     Active Substance: AVAPRITINIB
     Route: 065
     Dates: start: 2022

REACTIONS (5)
  - Diarrhoea [Recovered/Resolved]
  - Hypertension [Unknown]
  - Nausea [Unknown]
  - Back pain [Unknown]
  - Intervertebral disc disorder [Unknown]
